FAERS Safety Report 6998841-X (Version None)
Quarter: 2010Q3

REPORT INFORMATION
  Report Type: 
  Country: None (occurrence: None)
  Receive Date: 20100920
  Receipt Date: 20100113
  Transmission Date: 20110219
  Serious: Yes (Other)
  Sender: FDA-Public Use
  Company Number: US-ASTRAZENECA-2006UW03294

PATIENT
  Age: 44 Year
  Sex: Female
  Weight: 111.6 kg

DRUGS (4)
  1. SEROQUEL [Suspect]
     Indication: SCHIZOPHRENIA
     Route: 048
     Dates: start: 19960101, end: 20060101
  2. SEROQUEL [Suspect]
     Route: 048
     Dates: start: 20021121
  3. GEODON [Concomitant]
     Dates: start: 20060101
  4. HALDOL [Concomitant]
     Dates: start: 19950101

REACTIONS (4)
  - DIABETES MELLITUS [None]
  - DIABETIC KETOACIDOSIS [None]
  - TYPE 2 DIABETES MELLITUS [None]
  - WEIGHT INCREASED [None]
